FAERS Safety Report 6202785-0 (Version None)
Quarter: 2009Q2

REPORT INFORMATION
  Report Type: 
  Country: None (occurrence: None)
  Receive Date: 20090519
  Receipt Date: 20090511
  Transmission Date: 20091009
  Serious: Yes (Life-Threatening, Other)
  Sender: FDA-Public Use
  Company Number: 2009US001633

PATIENT
  Age: 59 Year
  Sex: Female

DRUGS (9)
  1. AMBISOME [Suspect]
     Indication: SYSTEMIC CANDIDA
     Dosage: 100 MG, UID/QD, IV NOS; 200 MG, UID/QD, IV NOS; 150 MG, UID/QD, IV NOS
     Route: 042
     Dates: start: 20080219, end: 20080225
  2. AMBISOME [Suspect]
     Indication: SYSTEMIC CANDIDA
     Dosage: 100 MG, UID/QD, IV NOS; 200 MG, UID/QD, IV NOS; 150 MG, UID/QD, IV NOS
     Route: 042
     Dates: start: 20080226, end: 20080228
  3. AMBISOME [Suspect]
     Indication: SYSTEMIC CANDIDA
     Dosage: 100 MG, UID/QD, IV NOS; 200 MG, UID/QD, IV NOS; 150 MG, UID/QD, IV NOS
     Route: 042
     Dates: start: 20080330, end: 20080409
  4. VFEND [Suspect]
     Indication: DRUG USE FOR UNKNOWN INDICATION
     Dosage: SEE IMAGE
     Route: 042
     Dates: start: 20080215, end: 20080215
  5. VFEND [Suspect]
     Indication: DRUG USE FOR UNKNOWN INDICATION
     Dosage: SEE IMAGE
     Route: 042
     Dates: start: 20080216, end: 20080216
  6. VFEND [Suspect]
     Indication: DRUG USE FOR UNKNOWN INDICATION
     Dosage: SEE IMAGE
     Route: 042
     Dates: start: 20080217, end: 20080218
  7. VFEND [Suspect]
     Indication: DRUG USE FOR UNKNOWN INDICATION
     Dosage: SEE IMAGE
     Route: 042
     Dates: start: 20080320, end: 20080320
  8. VFEND [Suspect]
     Indication: DRUG USE FOR UNKNOWN INDICATION
     Dosage: SEE IMAGE
     Route: 042
     Dates: start: 20080321, end: 20080328
  9. VFEND [Suspect]
     Indication: DRUG USE FOR UNKNOWN INDICATION
     Dosage: SEE IMAGE
     Route: 042
     Dates: start: 20080329, end: 20080329

REACTIONS (3)
  - HYPERBILIRUBINAEMIA [None]
  - MELAENA [None]
  - SERUM FERRITIN INCREASED [None]
